FAERS Safety Report 10461934 (Version 4)
Quarter: 2014Q4

REPORT INFORMATION
  Report Type: Spontaneous
  Country: GB (occurrence: GB)
  Receive Date: 20140918
  Receipt Date: 20141014
  Transmission Date: 20150528
  Serious: Yes (Hospitalization, Other)
  Sender: FDA-Public Use
  Company Number: PHFR2013GB005881

PATIENT
  Age: 72 Year
  Sex: Female

DRUGS (2)
  1. GLIVEC [Suspect]
     Active Substance: IMATINIB MESYLATE
     Dosage: 200 MG, UNK
     Route: 048
     Dates: end: 201311
  2. GLIVEC [Suspect]
     Active Substance: IMATINIB MESYLATE
     Indication: GASTROINTESTINAL STROMAL TUMOUR
     Dosage: 400 MG, UNK
     Route: 065
     Dates: start: 201011

REACTIONS (13)
  - Onychoclasis [Not Recovered/Not Resolved]
  - Lung infiltration [Recovered/Resolved]
  - Mastoiditis [Recovered/Resolved with Sequelae]
  - Ear disorder [Not Recovered/Not Resolved]
  - Rash [Recovered/Resolved]
  - Dry mouth [Recovered/Resolved]
  - Eczema [Recovered/Resolved]
  - Nail discolouration [Not Recovered/Not Resolved]
  - Candida infection [Recovered/Resolved]
  - Interstitial lung disease [Recovered/Resolved]
  - Cough [Recovering/Resolving]
  - Inflammation [Recovered/Resolved]
  - Sinusitis [Recovered/Resolved]

NARRATIVE: CASE EVENT DATE: 201108
